FAERS Safety Report 4423023-5 (Version None)
Quarter: 2004Q3

REPORT INFORMATION
  Report Type: 
  Country: None (occurrence: None)
  Receive Date: 20040811
  Receipt Date: 20040728
  Transmission Date: 20050211
  Serious: Yes (Disabling, Other)
  Sender: FDA-Public Use
  Company Number: US-JNJFOC-20040401261

PATIENT
  Age: 52 Year
  Sex: Female
  Weight: 72.58 kg

DRUGS (10)
  1. TOPAMAX [Suspect]
     Route: 049
  2. TOPAMAX [Suspect]
     Indication: BACK PAIN
     Route: 049
  3. TENORMIN [Concomitant]
  4. LANOXIN [Concomitant]
  5. ASPIRIN [Concomitant]
  6. PREMPRO [Concomitant]
  7. PREMPRO [Concomitant]
  8. NORCO [Concomitant]
  9. NORCO [Concomitant]
  10. MS CONTIN [Concomitant]

REACTIONS (16)
  - ANGLE CLOSURE GLAUCOMA [None]
  - ASTHENOPIA [None]
  - BLINDNESS [None]
  - CORNEAL DISORDER [None]
  - CORNEAL OEDEMA [None]
  - CORNEAL OPACITY [None]
  - EYE PAIN [None]
  - HEADACHE [None]
  - MYDRIASIS [None]
  - MYOPIA [None]
  - NAUSEA [None]
  - POST PROCEDURAL COMPLICATION [None]
  - PUPILLARY DISORDER [None]
  - SCAR [None]
  - VISUAL DISTURBANCE [None]
  - VOMITING [None]
